FAERS Safety Report 5688542-2 (Version None)
Quarter: 2008Q1

REPORT INFORMATION
  Report Type: 
  Country: None (occurrence: None)
  Receive Date: 20080331
  Receipt Date: 20080321
  Transmission Date: 20080703
  Serious: Yes (Hospitalization, Other)
  Sender: FDA-Public Use
  Company Number: JP-ABBOTT-08P-087-0443669-00

PATIENT
  Age: 66 Year
  Sex: Male

DRUGS (4)
  1. CEFZON CAPSULE [Suspect]
     Indication: DRUG USE FOR UNKNOWN INDICATION
     Route: 048
     Dates: start: 20080123, end: 20080130
  2. ETODOLAC [Concomitant]
     Indication: DRUG USE FOR UNKNOWN INDICATION
     Route: 048
     Dates: start: 20080116
  3. FLOPROPIONE [Concomitant]
     Indication: DRUG USE FOR UNKNOWN INDICATION
     Route: 048
     Dates: start: 20080116
  4. REBAMIPIDE [Concomitant]
     Indication: DRUG USE FOR UNKNOWN INDICATION
     Route: 048
     Dates: start: 20080123, end: 20080130

REACTIONS (5)
  - C-REACTIVE PROTEIN INCREASED [None]
  - COUGH [None]
  - EOSINOPHILIC PNEUMONIA [None]
  - LIVER DISORDER [None]
  - PRODUCTIVE COUGH [None]
